FAERS Safety Report 4935628-3 (Version None)
Quarter: 2006Q1

REPORT INFORMATION
  Report Type: 
  Country: None (occurrence: None)
  Receive Date: 20060307
  Receipt Date: 20050927
  Transmission Date: 20060701
  Serious: No
  Sender: FDA-Public Use
  Company Number: US-GLAXOSMITHKLINE-A0576045A

PATIENT
  Age: 46 Year
  Sex: Female
  Weight: 104.5 kg

DRUGS (1)
  1. REQUIP [Suspect]
     Indication: RESTLESS LEGS SYNDROME
     Dosage: 1MG TWICE PER DAY
     Route: 048

REACTIONS (3)
  - FEELING HOT [None]
  - OEDEMA PERIPHERAL [None]
  - ULCER [None]
